FAERS Safety Report 6228315-5 (Version None)
Quarter: 2009Q2

REPORT INFORMATION
  Report Type: 
  Country: None (occurrence: None)
  Receive Date: 20090612
  Receipt Date: 20090601
  Transmission Date: 20091009
  Serious: Yes (Other)
  Sender: FDA-Public Use
  Company Number: US-AVENTIS-200913601US

PATIENT
  Sex: Male
  Weight: 90.71 kg

DRUGS (3)
  1. LANTUS [Suspect]
     Route: 058
     Dates: start: 20060101
  2. DIURETICS [Concomitant]
     Dosage: DOSE: UNK
  3. CARDIOVASCULAR SYSTEM DRUGS [Concomitant]
     Dosage: DOSE: UNK

REACTIONS (5)
  - ABDOMINAL PAIN UPPER [None]
  - BLOOD GLUCOSE INCREASED [None]
  - CHOLECYSTITIS INFECTIVE [None]
  - NAUSEA [None]
  - VOMITING [None]
